FAERS Safety Report 20063249 (Version 1)
Quarter: 2021Q4

REPORT INFORMATION
  Report Type: Spontaneous
  Country: US (occurrence: US)
  Receive Date: 20211112
  Receipt Date: 20211112
  Transmission Date: 20220303
  Serious: Yes (Other)
  Sender: FDA-Public Use
  Company Number: US-SA-SAC20211110001305

PATIENT
  Sex: Female

DRUGS (3)
  1. KEVZARA [Interacting]
     Active Substance: SARILUMAB
     Indication: Rheumatoid arthritis
     Dosage: 200 MG, QOW
     Route: 058
     Dates: start: 202110, end: 202111
  2. LEFLUNOMIDE [Interacting]
     Active Substance: LEFLUNOMIDE
  3. ACTEMRA [Concomitant]
     Active Substance: TOCILIZUMAB

REACTIONS (3)
  - Drug interaction [Unknown]
  - Myelosuppression [Unknown]
  - Rash [Unknown]
